FAERS Safety Report 13490424 (Version 3)
Quarter: 2017Q4

REPORT INFORMATION
  Report Type: Spontaneous
  Country: JP (occurrence: JP)
  Receive Date: 20170427
  Receipt Date: 20171107
  Transmission Date: 20180320
  Serious: Yes (Other)
  Sender: FDA-Public Use
  Company Number: JP-ELI_LILLY_AND_COMPANY-JP201704010043

PATIENT
  Age: 66 Year
  Sex: Male

DRUGS (8)
  1. ERBITUX [Suspect]
     Active Substance: CETUXIMAB
     Dosage: 370 MG/M2, WEEKLY (1/W)
     Route: 042
     Dates: start: 2016, end: 20170613
  2. RULID [Suspect]
     Active Substance: ROXITHROMYCIN
     Indication: PRODUCT USED FOR UNKNOWN INDICATION
     Dosage: UNK UNK, UNKNOWN
     Route: 065
  3. ACOFIDE [Suspect]
     Active Substance: ACOTIAMIDE HYDROCHLORIDE
     Indication: PRODUCT USED FOR UNKNOWN INDICATION
     Dosage: UNK UNK, UNKNOWN
     Route: 065
  4. UFT [Suspect]
     Active Substance: TEGAFUR\URACIL
     Indication: HYPOPHARYNGEAL CANCER RECURRENT
     Dosage: UNK, UNKNOWN
     Route: 048
  5. GASMOTIN [Suspect]
     Active Substance: MOSAPRIDE CITRATE
     Indication: PRODUCT USED FOR UNKNOWN INDICATION
     Dosage: UNK UNK, UNKNOWN
     Route: 065
  6. CISPLATIN. [Suspect]
     Active Substance: CISPLATIN
     Indication: HYPOPHARYNGEAL CANCER RECURRENT
     Dosage: 130 MG/M2, WEEKLY (1/W)
     Route: 042
     Dates: start: 20160826, end: 20170411
  7. 5-FU                               /00098801/ [Suspect]
     Active Substance: FLUOROURACIL
     Indication: HYPOPHARYNGEAL CANCER RECURRENT
     Dosage: 1000 MG/M2, UNKNOWN
     Route: 042
     Dates: start: 20160826, end: 20170416
  8. ERBITUX [Suspect]
     Active Substance: CETUXIMAB
     Indication: HYPOPHARYNGEAL CANCER RECURRENT
     Dosage: 600 MG, UNKNOWN
     Route: 041
     Dates: start: 20160826

REACTIONS (3)
  - Hypothyroidism [Recovering/Resolving]
  - Myxoedema [Recovered/Resolved]
  - Off label use [Unknown]

NARRATIVE: CASE EVENT DATE: 20161227
